FAERS Safety Report 18369013 (Version 1)
Quarter: 2020Q4

REPORT INFORMATION
  Report Type: Report from Study
  Country: JP (occurrence: JP)
  Receive Date: 20201011
  Receipt Date: 20201011
  Transmission Date: 20210114
  Serious: Yes (Other)
  Sender: FDA-Public Use
  Company Number: JP-PBT-000105

PATIENT
  Age: 55 Year

DRUGS (3)
  1. TACROLIMUS. [Suspect]
     Active Substance: TACROLIMUS
     Indication: DERMATOMYOSITIS
     Route: 065
  2. CYCLOPHOSPHAMIDE. [Suspect]
     Active Substance: CYCLOPHOSPHAMIDE
     Indication: DERMATOMYOSITIS
     Route: 042
  3. PREDNISOLONE. [Suspect]
     Active Substance: PREDNISOLONE
     Indication: DERMATOMYOSITIS
     Route: 065

REACTIONS (6)
  - Drug effective for unapproved indication [Unknown]
  - Interstitial lung disease [Unknown]
  - Renal disorder [Unknown]
  - Staphylococcal sepsis [Unknown]
  - Condition aggravated [Unknown]
  - Cytomegalovirus infection reactivation [Unknown]
